FAERS Safety Report 9881076 (Version 1)
Quarter: 2014Q1

REPORT INFORMATION
  Report Type: Spontaneous
  Country: US (occurrence: US)
  Receive Date: 20140207
  Receipt Date: 20140207
  Transmission Date: 20141002
  Serious: No
  Sender: FDA-Public Use
  Company Number: US-PFIZER INC-2014033717

PATIENT
  Age: 57 Year
  Sex: Female
  Weight: 87.53 kg

DRUGS (8)
  1. LYRICA [Suspect]
     Indication: NEUROPATHY PERIPHERAL
     Dosage: 75 MG, 1X/DAY
     Route: 048
     Dates: start: 20140203
  2. METOPROLOL [Concomitant]
     Dosage: UNK
  3. LEVOTHYROXINE [Concomitant]
     Indication: HYPOTHYROIDISM
     Dosage: UNK
  4. FLONASE [Concomitant]
     Dosage: UNK
     Route: 045
  5. PACERONE [Concomitant]
     Indication: ATRIAL FIBRILLATION
     Dosage: UNK
  6. LASIX [Concomitant]
     Dosage: UNK
  7. KLOR-CON [Concomitant]
     Dosage: UNK
  8. EFFEXOR [Concomitant]
     Dosage: UNK

REACTIONS (1)
  - Drug ineffective [Unknown]
